FAERS Safety Report 7927274-4 (Version None)
Quarter: 2011Q4

REPORT INFORMATION
  Report Type: 
  Country: None (occurrence: None)
  Receive Date: 20111118
  Receipt Date: 20111017
  Transmission Date: 20120403
  Serious: Yes (Other)
  Sender: FDA-Public Use
  Company Number: US-UCBSA-041813

PATIENT
  Age: 31 Year
  Sex: Female
  Weight: 50.8 kg

DRUGS (9)
  1. COMPAZINE [Concomitant]
     Route: 048
     Dates: start: 20090127
  2. CALCIUM [Concomitant]
     Indication: CROHN'S DISEASE
  3. CIMZIA [Suspect]
     Indication: CROHN'S DISEASE
     Dosage: INITIATED ON 27/JAN/2009 AT A DOSE OF 400 MG
     Route: 058
     Dates: start: 20110720
  4. MULTI-VITAMINS [Concomitant]
     Indication: CROHN'S DISEASE
     Route: 048
     Dates: start: 20090201
  5. FOLIC ACID [Concomitant]
     Indication: CROHN'S DISEASE
     Dosage: DOSE FREQ.: DAILY
     Route: 048
     Dates: start: 20090114
  6. COUMADIN [Concomitant]
     Indication: PULMONARY EMBOLISM
     Dosage: 7.5MG (MON, WED, FRI)  10 MG TUES, THUR, SAT, SUN) DOSE FREQ.: DAILY
     Route: 048
     Dates: start: 20050901
  7. LOTEMAX [Concomitant]
     Dosage: 0.5% GTT OS
     Route: 047
     Dates: start: 20100310
  8. ACETAMINOPHEN [Concomitant]
     Indication: CROHN'S DISEASE
  9. COMPAZINE [Concomitant]
     Route: 048
     Dates: start: 20090204

REACTIONS (1)
  - PSORIASIS [None]
